FAERS Safety Report 8465387-1 (Version None)
Quarter: 2012Q2

REPORT INFORMATION
  Report Type: 
  Country: None (occurrence: None)
  Receive Date: 20120626
  Receipt Date: 20120612
  Transmission Date: 20120825
  Serious: Yes (Other)
  Sender: FDA-Public Use
  Company Number: JP-PFIZER INC-2012130191

PATIENT
  Age: 74 Year
  Sex: Female

DRUGS (26)
  1. CELEBREX [Suspect]
     Indication: BACK PAIN
  2. TANATRIL [Concomitant]
     Dosage: UNK
  3. AMARYL [Concomitant]
     Dosage: UNK
  4. MECOBALAMIN [Concomitant]
     Dosage: UNK
  5. PROTECADIN [Concomitant]
     Dosage: UNK
  6. ALFAROL [Concomitant]
     Dosage: UNK
  7. LOXONIN [Concomitant]
     Indication: NASOPHARYNGITIS
     Dosage: UNK (TAPE)
  8. MUCODYNE [Concomitant]
     Indication: NASOPHARYNGITIS
     Dosage: UNK
  9. NILDILART [Concomitant]
     Dosage: UNK
  10. CRESTOR [Concomitant]
     Dosage: UNK
  11. TETRAMIDE [Concomitant]
     Dosage: UNK
  12. MUCOSTA [Concomitant]
     Dosage: UNK
  13. EMPYNASE P [Concomitant]
     Indication: NASOPHARYNGITIS
     Dosage: UNK
  14. ALLOPURINOL [Concomitant]
     Dosage: UNK
  15. METFORMIN HCL [Concomitant]
     Dosage: UNK
  16. HUSCODE [Concomitant]
     Indication: NASOPHARYNGITIS
     Dosage: UNK
  17. ASPIRIN [Concomitant]
     Dosage: UNK
  18. OLOPATADINE HCL [Concomitant]
     Dosage: UNK
  19. BROCIN-CODEINE [Concomitant]
     Indication: NASOPHARYNGITIS
     Dosage: UNK
  20. MYTEAR [Concomitant]
     Dosage: UNK
  21. CLARITHROMYCIN [Concomitant]
     Indication: NASOPHARYNGITIS
     Dosage: UNK
  22. CELEBREX [Suspect]
     Indication: MUSCULOSKELETAL PAIN
     Dosage: 100 MG, 2X/DAY
     Route: 048
     Dates: start: 20110420
  23. SEDEKOPAN [Concomitant]
     Dosage: UNK
  24. JANUVIA [Concomitant]
     Dosage: UNK
  25. MUCOSOLVAN [Concomitant]
     Indication: NASOPHARYNGITIS
     Dosage: UNK
  26. TRANSAMINE CAP [Concomitant]
     Indication: NASOPHARYNGITIS
     Dosage: UNK

REACTIONS (3)
  - ANGINA PECTORIS [None]
  - CARDIAC DISORDER [None]
  - NASOPHARYNGITIS [None]
